FAERS Safety Report 15701296 (Version 4)
Quarter: 2019Q2

REPORT INFORMATION
  Report Type: Spontaneous
  Country: US (occurrence: US)
  Receive Date: 20181207
  Receipt Date: 20190621
  Transmission Date: 20190711
  Serious: Yes (Hospitalization)
  Sender: FDA-Public Use
  Company Number: US-ACTELION-A-NJ2018-182729

PATIENT
  Age: 66 Year
  Sex: Female

DRUGS (2)
  1. CARDIZEM CD [Concomitant]
     Active Substance: DILTIAZEM HYDROCHLORIDE
     Dosage: 180 UNK, QD
     Dates: start: 2015
  2. OPSUMIT [Suspect]
     Active Substance: MACITENTAN
     Indication: PULMONARY ARTERIAL HYPERTENSION
     Dosage: 10 MG, QD
     Route: 048
     Dates: start: 2016

REACTIONS (6)
  - Atrioventricular block [Recovered/Resolved]
  - Dyspnoea [Unknown]
  - Cardiac pacemaker insertion [Recovered/Resolved]
  - Cardiac failure [Unknown]
  - Rash [Unknown]
  - Fatigue [Unknown]

NARRATIVE: CASE EVENT DATE: 201811
